FAERS Safety Report 5056593-7 (Version None)
Quarter: 2006Q3

REPORT INFORMATION
  Report Type: 
  Country: None (occurrence: None)
  Receive Date: 20060714
  Receipt Date: 20060706
  Transmission Date: 20061208
  Serious: Yes (Other)
  Sender: FDA-Public Use
  Company Number: HQWYE771211JUL06

PATIENT
  Age: 66 Year
  Sex: Female
  Weight: 65.83 kg

DRUGS (1)
  1. ADVIL PM [Suspect]
     Indication: INSOMNIA
     Dosage: 1 CAPLET 1 TIME ONLY, ORAL
     Route: 048
     Dates: start: 20060629, end: 20060629

REACTIONS (3)
  - BLOOD PRESSURE INCREASED [None]
  - DRUG HYPERSENSITIVITY [None]
  - HEART RATE INCREASED [None]
